FAERS Safety Report 18182725 (Version 1)
Quarter: 2020Q3

REPORT INFORMATION
  Report Type: Report from Study
  Country: GB (occurrence: GB)
  Receive Date: 20200821
  Receipt Date: 20200821
  Transmission Date: 20201103
  Serious: Yes (Other)
  Sender: FDA-Public Use
  Company Number: GB-SAMSUNG BIOEPIS-SB-2020-22872

PATIENT
  Sex: Female

DRUGS (2)
  1. IMRALDI [Suspect]
     Active Substance: ADALIMUMAB
     Route: 058
  2. IMRALDI [Suspect]
     Active Substance: ADALIMUMAB
     Indication: CROHN^S DISEASE
     Route: 058
     Dates: start: 20200311

REACTIONS (8)
  - Appetite disorder [Unknown]
  - Immunosuppression [Unknown]
  - Papilloma viral infection [Unknown]
  - Weight decreased [Unknown]
  - Crohn^s disease [Unknown]
  - Pain [Unknown]
  - Therapeutic response shortened [Unknown]
  - Anorectal discomfort [Unknown]
